FAERS Safety Report 25046749 (Version 1)
Quarter: 2025Q1

REPORT INFORMATION
  Report Type: Spontaneous
  Country: US (occurrence: US)
  Receive Date: 20250306
  Receipt Date: 20250306
  Transmission Date: 20250408
  Serious: Yes (Other)
  Sender: BRISTOL-MYERS SQUIBB COMPANY
  Company Number: US-MLMSERVICE-20250217-PI414058-00165-9

PATIENT
  Age: 59 Year
  Sex: Female

DRUGS (14)
  1. ABRAXANE [Suspect]
     Active Substance: PACLITAXEL
     Indication: Pancreatic carcinoma metastatic
     Dates: start: 20200409
  2. ABRAXANE [Suspect]
     Active Substance: PACLITAXEL
     Indication: Metastases to liver
     Dates: end: 20201207
  3. NIVOLUMAB [Suspect]
     Active Substance: NIVOLUMAB
     Indication: Pancreatic carcinoma metastatic
     Dates: start: 20200928, end: 20201214
  4. NIVOLUMAB [Suspect]
     Active Substance: NIVOLUMAB
     Indication: Metastases to liver
  5. GEMCITABINE [Suspect]
     Active Substance: GEMCITABINE
     Indication: Pancreatic carcinoma metastatic
     Dates: start: 20200409, end: 20201207
  6. GEMCITABINE [Suspect]
     Active Substance: GEMCITABINE
     Indication: Metastases to liver
  7. ANKTIVA [Suspect]
     Active Substance: NOGAPENDEKIN ALFA INBAKICEPT-PMLN
     Indication: Pancreatic carcinoma metastatic
     Route: 058
     Dates: start: 20200416, end: 20201207
  8. ANKTIVA [Suspect]
     Active Substance: NOGAPENDEKIN ALFA INBAKICEPT-PMLN
     Indication: Metastases to liver
  9. ALDOXORUBICIN [Suspect]
     Active Substance: ALDOXORUBICIN
     Indication: Pancreatic carcinoma metastatic
     Dates: start: 20200622, end: 20201103
  10. ALDOXORUBICIN [Suspect]
     Active Substance: ALDOXORUBICIN
     Indication: Metastases to liver
  11. CYCLOPHOSPHAMIDE [Suspect]
     Active Substance: CYCLOPHOSPHAMIDE
     Indication: Pancreatic carcinoma metastatic
     Route: 048
     Dates: start: 20200409, end: 20201009
  12. CYCLOPHOSPHAMIDE [Suspect]
     Active Substance: CYCLOPHOSPHAMIDE
     Indication: Metastases to liver
  13. CAPECITABINE [Suspect]
     Active Substance: CAPECITABINE
     Indication: Pancreatic carcinoma metastatic
     Dates: start: 20201130
  14. CAPECITABINE [Suspect]
     Active Substance: CAPECITABINE
     Indication: Metastases to liver

REACTIONS (3)
  - Neutropenia [Unknown]
  - Anaemia [Unknown]
  - Off label use [Unknown]

NARRATIVE: CASE EVENT DATE: 20200101
